FAERS Safety Report 4723595-7 (Version None)
Quarter: 2005Q3

REPORT INFORMATION
  Report Type: 
  Country: None (occurrence: None)
  Receive Date: 20050718
  Receipt Date: 20050624
  Transmission Date: 20060218
  Serious: Yes (Other)
  Sender: FDA-Public Use
  Company Number: PER 0605004

PATIENT

DRUGS (2)
  1. TIBIALS TENDIN ANT FZ/I  TISSUE [Suspect]
  2. . [Suspect]

REACTIONS (2)
  - POSTOPERATIVE INFECTION [None]
  - STAPHYLOCOCCAL INFECTION [None]
